FAERS Safety Report 20112719 (Version 1)
Quarter: 2021Q4

REPORT INFORMATION
  Report Type: Spontaneous
  Country: GB (occurrence: None)
  Receive Date: 20211125
  Receipt Date: 20211125
  Transmission Date: 20220303
  Serious: Yes (Other)
  Sender: FDA-Public Use
  Company Number: GB-ROCHE-2958667

PATIENT
  Age: 80 Year
  Sex: Male

DRUGS (1)
  1. POLATUZUMAB VEDOTIN [Suspect]
     Active Substance: POLATUZUMAB VEDOTIN
     Indication: Product used for unknown indication
     Route: 065

REACTIONS (10)
  - Lethargy [Unknown]
  - Headache [Unknown]
  - Postural orthostatic tachycardia syndrome [Unknown]
  - Constipation [Unknown]
  - Abdominal pain [Unknown]
  - Gout [Unknown]
  - Nausea [Unknown]
  - Restlessness [Unknown]
  - Inappropriate schedule of product administration [Unknown]
  - Therapy non-responder [Unknown]
